FAERS Safety Report 7107671 (Version 7)
Quarter: 2013Q2

REPORT INFORMATION
  Report Type: Spontaneous
  Country: US (occurrence: US)
  Receive Date: 20090908
  Receipt Date: 20130523
  Transmission Date: 20140414
  Serious: Yes (Hospitalization, Disabling, Other)
  Sender: FDA-Public Use
  Company Number: US-009507513-0909USA00175

PATIENT
  Sex: Female
  Weight: 56.69 kg

DRUGS (18)
  1. FOSAMAX [Suspect]
     Indication: OSTEOPOROSIS PROPHYLAXIS
     Dosage: 10 MG, QD
     Route: 048
     Dates: start: 199612, end: 200110
  2. FOSAMAX [Suspect]
     Indication: OSTEOPENIA
     Dosage: 70 MG, QW
     Route: 048
     Dates: start: 200110, end: 200803
  3. FOSAMAX [Suspect]
     Dosage: UNK
     Dates: end: 200908
  4. ALENDRONATE SODIUM [Suspect]
     Indication: OSTEOPENIA
     Dosage: 70 MG, QW
     Route: 048
     Dates: start: 200803, end: 20090731
  5. ALENDRONATE SODIUM [Suspect]
     Indication: OSTEOPOROSIS PROPHYLAXIS
  6. PRINIVIL [Concomitant]
     Route: 048
  7. AMLODIPINE [Concomitant]
  8. LIPITOR [Concomitant]
  9. ESTRADIOL [Concomitant]
  10. ASPIRIN [Concomitant]
  11. MK-2933 [Concomitant]
  12. VITAMINS (UNSPECIFIED) [Concomitant]
     Dosage: UNK, QD
     Dates: start: 1968
  13. ASCORBIC ACID [Concomitant]
     Dosage: 2000 MG, UNK
     Dates: start: 1982
  14. VITAMIN E [Concomitant]
     Dosage: 400 MG, UNK
     Dates: start: 1982
  15. SELENIUM (UNSPECIFIED) [Concomitant]
     Dosage: 200 MCG
     Dates: start: 1982
  16. BIOTIN [Concomitant]
     Dosage: 5000 MCG
     Dates: start: 1982
  17. CHOLECALCIFEROL [Concomitant]
     Dosage: 5000 IU/KG, UNK
     Dates: start: 1982
  18. CALCIUM CARBONATE (+) VITAMIN D (UNSPECIFIED) [Concomitant]
     Dosage: 600 IU, 1200 MG
     Dates: start: 1952

REACTIONS (23)
  - Intramedullary rod insertion [Unknown]
  - Confusion postoperative [Unknown]
  - Hiatus hernia [Unknown]
  - Supraventricular tachycardia [Unknown]
  - Haematocrit decreased [Unknown]
  - Femur fracture [Recovered/Resolved]
  - Blood thyroid stimulating hormone increased [Unknown]
  - Haematuria [Unknown]
  - Tooth extraction [Unknown]
  - Blood cholesterol increased [Unknown]
  - Steroid therapy [Unknown]
  - Depression [Not Recovered/Not Resolved]
  - Anxiety [Not Recovered/Not Resolved]
  - Fall [Unknown]
  - Ankle fracture [Unknown]
  - Angiopathy [Unknown]
  - Hypertension [Not Recovered/Not Resolved]
  - Vaginal disorder [Unknown]
  - Gastrooesophageal reflux disease [Unknown]
  - Bursitis [Recovered/Resolved]
  - Lumbar spinal stenosis [Unknown]
  - Spinal claudication [Unknown]
  - Scoliosis [Unknown]
